FAERS Safety Report 5800858-5 (Version None)
Quarter: 2008Q3

REPORT INFORMATION
  Report Type: 
  Country: None (occurrence: None)
  Receive Date: 20080703
  Receipt Date: 20080624
  Transmission Date: 20090109
  Serious: Yes (Other)
  Sender: FDA-Public Use
  Company Number: GB-GENENTECH-263708

PATIENT

DRUGS (1)
  1. MABTHERA [Suspect]
     Indication: HAIRY CELL LEUKAEMIA

REACTIONS (2)
  - SPLENOMEGALY [None]
  - THROMBOCYTOPENIA [None]
